FAERS Safety Report 18620990 (Version 1)
Quarter: 2020Q4

REPORT INFORMATION
  Report Type: Report from Study
  Country: US (occurrence: US)
  Receive Date: 20201216
  Receipt Date: 20201216
  Transmission Date: 20210114
  Serious: Yes (Hospitalization, Other)
  Sender: FDA-Public Use
  Company Number: US-GILEAD-2020-0508825

PATIENT
  Age: 47 Year
  Sex: Female

DRUGS (11)
  1. FAMOTIDINE. [Concomitant]
     Active Substance: FAMOTIDINE
  2. LOVENOX HP [Concomitant]
     Active Substance: ENOXAPARIN SODIUM
  3. METOLAZONE. [Concomitant]
     Active Substance: METOLAZONE
  4. UPTRAVI [Concomitant]
     Active Substance: SELEXIPAG
  5. METOPROLOL. [Concomitant]
     Active Substance: METOPROLOL
  6. AMBRISENTAN [Suspect]
     Active Substance: AMBRISENTAN
     Indication: PULMONARY HYPERTENSION
     Dosage: 10 MG, QD
     Route: 065
  7. BUMETANIDE. [Concomitant]
     Active Substance: BUMETANIDE
  8. MVI 3 [Concomitant]
  9. LORATADINE. [Concomitant]
     Active Substance: LORATADINE
  10. ADCIRCA [Concomitant]
     Active Substance: TADALAFIL
  11. VITAMIN D3 [Concomitant]
     Active Substance: CHOLECALCIFEROL

REACTIONS (2)
  - Cellulitis [Recovered/Resolved]
  - Fluid retention [Recovered/Resolved]
